FAERS Safety Report 5258590-5 (Version None)
Quarter: 2007Q1

REPORT INFORMATION
  Report Type: 
  Country: None (occurrence: None)
  Receive Date: 20070308
  Receipt Date: 20070228
  Transmission Date: 20070707
  Serious: Yes (Other)
  Sender: FDA-Public Use
  Company Number: 2006UW10838

PATIENT
  Age: 19686 Day
  Sex: Female
  Weight: 81.8 kg

DRUGS (1)
  1. SEROQUEL [Suspect]
     Indication: SCHIZOPHRENIA
     Route: 048
     Dates: start: 20051124

REACTIONS (2)
  - DIABETES MELLITUS [None]
  - DIABETIC COMA [None]
